FAERS Safety Report 5749736-0 (Version None)
Quarter: 2008Q2

REPORT INFORMATION
  Report Type: 
  Country: None (occurrence: None)
  Receive Date: 20080522
  Receipt Date: 20080522
  Transmission Date: 20081010
  Serious: Yes (Other)
  Sender: FDA-Public Use
  Company Number: None

PATIENT

DRUGS (2)
  1. AMLODIPINE [Suspect]
     Indication: HYPERTENSION
     Dosage: ONE PO BID
     Route: 048
     Dates: start: 20080411
  2. LISINOPRIL [Concomitant]

REACTIONS (2)
  - DIZZINESS [None]
  - MYALGIA [None]
